FAERS Safety Report 9979655 (Version 1)
Quarter: 2014Q1

REPORT INFORMATION
  Report Type: Spontaneous
  Country: US (occurrence: US)
  Receive Date: 20140306
  Receipt Date: 20140306
  Transmission Date: 20141002
  Serious: Yes (Other)
  Sender: FDA-Public Use
  Company Number: US-ABBVIE-13P-163-1168197-00

PATIENT
  Age: 63 Year
  Sex: Male
  Weight: 70.37 kg

DRUGS (4)
  1. HUMIRA [Suspect]
     Indication: RHEUMATOID ARTHRITIS
     Dates: start: 201201, end: 20131026
  2. TOFRANIL [Concomitant]
     Indication: DEPRESSION
  3. INDERAL [Concomitant]
     Indication: HYPERTENSION
  4. AMLODIPINE [Concomitant]
     Indication: HYPERTENSION

REACTIONS (14)
  - Prostate cancer [Recovered/Resolved]
  - Gastrooesophageal reflux disease [Not Recovered/Not Resolved]
  - Urticaria [Not Recovered/Not Resolved]
  - Urticaria [Not Recovered/Not Resolved]
  - Swelling [Not Recovered/Not Resolved]
  - Skin warm [Not Recovered/Not Resolved]
  - Pruritus [Not Recovered/Not Resolved]
  - Night sweats [Not Recovered/Not Resolved]
  - Dysphagia [Not Recovered/Not Resolved]
  - Tongue cyst [Not Recovered/Not Resolved]
  - Hypersensitivity [Not Recovered/Not Resolved]
  - Nodule [Not Recovered/Not Resolved]
  - Weight decreased [Not Recovered/Not Resolved]
  - Pyrexia [Not Recovered/Not Resolved]
